FAERS Safety Report 10272677 (Version 1)
Quarter: 2014Q2

REPORT INFORMATION
  Report Type: Spontaneous
  Country: US (occurrence: None)
  Receive Date: 20140630
  Receipt Date: 20140630
  Transmission Date: 20141212
  Serious: Yes (Hospitalization, Other)
  Sender: FDA-Public Use
  Company Number: None

PATIENT
  Age: 5 Month
  Sex: Male
  Weight: 6.12 kg

DRUGS (1)
  1. QPAP INFANTS DROPS [Suspect]
     Indication: HAND-FOOT-AND-MOUTH DISEASE
     Dates: start: 20140623, end: 20140624

REACTIONS (4)
  - Overdose [None]
  - Hepatic enzyme increased [None]
  - Wrong drug administered [None]
  - Drug dispensing error [None]
